FAERS Safety Report 5721865-7 (Version None)
Quarter: 2008Q2

REPORT INFORMATION
  Report Type: 
  Country: None (occurrence: None)
  Receive Date: 20080429
  Receipt Date: 20080320
  Transmission Date: 20081010
  Serious: Yes (Hospitalization)
  Sender: FDA-Public Use
  Company Number: US-PFIZER INC-2008015627

PATIENT
  Sex: Male
  Weight: 77.1 kg

DRUGS (12)
  1. MARAVIROC [Suspect]
     Indication: HIV INFECTION
     Route: 048
  2. VIDEX [Concomitant]
     Indication: HIV INFECTION
     Route: 048
  3. VIREAD [Concomitant]
     Indication: HIV INFECTION
     Route: 048
     Dates: start: 20050120
  4. KALETRA [Concomitant]
     Indication: HIV INFECTION
     Dosage: TEXT:UD: 400/100MG; TDD: 800/200MG
     Route: 048
     Dates: start: 20050120
  5. PERCOCET [Concomitant]
     Route: 048
  6. VITAMIN CAP [Concomitant]
     Route: 048
     Dates: start: 19940101
  7. ASCORBIC ACID [Concomitant]
     Route: 048
     Dates: start: 19940101
  8. VITAMIN B [Concomitant]
     Route: 048
     Dates: start: 19940101
  9. IBUPROFEN [Concomitant]
     Route: 048
     Dates: start: 20060530
  10. LOPID [Concomitant]
     Route: 048
     Dates: start: 20021101, end: 20080218
  11. AMBIEN [Concomitant]
     Route: 048
     Dates: start: 20070822
  12. ACETYLSALICYLIC ACID SRT [Concomitant]
     Route: 048
     Dates: start: 20020801

REACTIONS (2)
  - ACUTE MYOCARDIAL INFARCTION [None]
  - CHEST PAIN [None]
